FAERS Safety Report 4931715-4 (Version None)
Quarter: 2006Q1

REPORT INFORMATION
  Report Type: 
  Country: None (occurrence: None)
  Receive Date: 20060303
  Receipt Date: 20060222
  Transmission Date: 20060701
  Serious: Yes (Hospitalization)
  Sender: FDA-Public Use
  Company Number: SE-AVENTIS-200611689GDDC

PATIENT
  Age: 50 Year
  Sex: Female
  Weight: 68.5 kg

DRUGS (2)
  1. DOCETAXEL [Suspect]
     Indication: BREAST CANCER
     Route: 042
     Dates: start: 20051129, end: 20060202
  2. EPIRUBICIN [Suspect]
     Indication: BREAST CANCER
     Route: 042
     Dates: start: 20060203

REACTIONS (2)
  - CONFUSIONAL STATE [None]
  - EMOTIONAL DISTRESS [None]
